FAERS Safety Report 19133467 (Version 1)
Quarter: 2021Q2

REPORT INFORMATION
  Report Type: Spontaneous
  Country: US (occurrence: US)
  Receive Date: 20210413
  Receipt Date: 20210413
  Transmission Date: 20210717
  Serious: No
  Sender: FDA-Public Use
  Company Number: None

PATIENT
  Age: 44 Year
  Sex: Female
  Weight: 60.75 kg

DRUGS (1)
  1. AZITHROMYCIN ANHYDROUS. [Suspect]
     Active Substance: AZITHROMYCIN ANHYDROUS
     Indication: TOOTH INFECTION
     Route: 048
     Dates: start: 20210406, end: 20210413

REACTIONS (4)
  - Headache [None]
  - Ear pain [None]
  - Paranasal sinus discomfort [None]
  - Heart rate irregular [None]

NARRATIVE: CASE EVENT DATE: 20210408
